FAERS Safety Report 9913910 (Version 2)
Quarter: 2014Q1

REPORT INFORMATION
  Report Type: Spontaneous
  Country: US (occurrence: US)
  Receive Date: 20140220
  Receipt Date: 20140318
  Transmission Date: 20141002
  Serious: Yes (Other)
  Sender: FDA-Public Use
  Company Number: US-BAYER-2014-026795

PATIENT
  Age: 22 Year
  Sex: Female
  Weight: 59 kg

DRUGS (1)
  1. MIRENA [Suspect]
     Dosage: 20 MCG/24HR, CONT
     Route: 015
     Dates: start: 20090807, end: 20120202

REACTIONS (16)
  - Uterine perforation [None]
  - Device dislocation [None]
  - Pelvic pain [None]
  - Abdominal pain [None]
  - Injury [None]
  - Emotional distress [None]
  - Gastrointestinal injury [None]
  - Genital haemorrhage [None]
  - Internal injury [None]
  - Dyspareunia [None]
  - Medical device discomfort [None]
  - Depression [None]
  - Anxiety [None]
  - Emotional distress [None]
  - Fear [None]
  - Device issue [None]
